FAERS Safety Report 6785046-0 (Version None)
Quarter: 2010Q2

REPORT INFORMATION
  Report Type: 
  Country: None (occurrence: None)
  Receive Date: 20100622
  Receipt Date: 20100609
  Transmission Date: 20101027
  Serious: Yes (Other)
  Sender: FDA-Public Use
  Company Number: DE-GENENTECH-302946

PATIENT
  Age: 37 Year
  Sex: Female

DRUGS (9)
  1. RITUXIMAB [Suspect]
     Indication: PEMPHIGUS
     Dosage: 375 MG/M2, UNK
     Route: 065
  2. AZATHIOPRINE [Concomitant]
     Indication: PEMPHIGUS
     Dosage: UNK
     Route: 048
  3. AZATHIOPRINE [Concomitant]
     Dosage: UNK
     Route: 048
  4. PREDNISOLONE [Concomitant]
     Indication: PEMPHIGUS
     Dosage: UNK
     Route: 048
  5. PREDNISOLONE [Concomitant]
     Dosage: UNK
     Route: 048
  6. PREDNISOLONE [Concomitant]
     Dosage: UNK
     Route: 048
  7. PREDNISOLONE [Concomitant]
     Dosage: UNK
     Route: 048
  8. MYCOPHENOLATE MOFETIL [Concomitant]
     Indication: PEMPHIGUS
     Dosage: UNK
     Route: 048
  9. MYCOPHENOLATE MOFETIL [Concomitant]
     Dosage: UNK
     Route: 048

REACTIONS (2)
  - DEEP VEIN THROMBOSIS [None]
  - PULMONARY EMBOLISM [None]
